FAERS Safety Report 8262016-7 (Version None)
Quarter: 2012Q2

REPORT INFORMATION
  Report Type: 
  Country: None (occurrence: None)
  Receive Date: 20120405
  Receipt Date: 20120328
  Transmission Date: 20120825
  Serious: Yes (Hospitalization)
  Sender: FDA-Public Use
  Company Number: FR-NAPPMUNDI-GBR-2012-0010181

PATIENT
  Sex: Female

DRUGS (10)
  1. OXYCONTIN [Suspect]
     Indication: PAIN
     Dosage: 20 MG, BID
     Route: 048
     Dates: start: 20120207, end: 20120209
  2. FORLAX                             /00754501/ [Concomitant]
     Dosage: UNK
     Dates: start: 20120110, end: 20120113
  3. ACETAMINOPHEN [Concomitant]
  4. MOPRAL                             /00661201/ [Concomitant]
     Dosage: 20 MG, UNK
     Dates: start: 20120110, end: 20120112
  5. MORPHINE SULFATE [Suspect]
     Indication: PAIN
     Dosage: 40 MG, BID
     Route: 048
     Dates: start: 20120109, end: 20120112
  6. MORPHINE SULFATE [Suspect]
     Indication: PAIN
     Dosage: UNK
     Route: 048
     Dates: start: 20120125, end: 20120130
  7. GAVISCON                           /00237601/ [Concomitant]
     Dosage: UNK
     Dates: start: 20120110, end: 20120111
  8. IMOVANE [Concomitant]
     Dosage: 7.5 MG, UNK
  9. AMLODIPINE BESYLATE [Concomitant]
     Dosage: 5 MG, UNK
  10. MOTILIUM                           /00498201/ [Concomitant]
     Dosage: 1 UNK, UNK
     Route: 048
     Dates: start: 20120110, end: 20120111

REACTIONS (2)
  - CYTOLYTIC HEPATITIS [None]
  - CHOLESTASIS [None]
